FAERS Safety Report 8111635 (Version 5)
Quarter: 2013Q1

REPORT INFORMATION
  Report Type: Spontaneous
  Country: US (occurrence: US)
  Receive Date: 20110829
  Receipt Date: 20130125
  Transmission Date: 20140127
  Serious: Yes (Hospitalization)
  Sender: FDA-Public Use
  Company Number: US-BAYER-2011-075229

PATIENT
  Age: 39 Year
  Sex: Female
  Weight: 59 kg

DRUGS (13)
  1. YASMIN [Suspect]
     Dosage: UNK
     Dates: start: 200802, end: 200808
  2. TOPROL [Concomitant]
     Indication: CARDIAC DISORDER
     Dosage: UNK
     Dates: start: 2008
  3. PLAVIX [Concomitant]
     Indication: CARDIAC DISORDER
     Dosage: UNK
     Dates: start: 2008, end: 2009
  4. PLAVIX [Concomitant]
     Indication: CARDIAC DISORDER
     Dosage: 162 MG, DAILY
  5. ZOCOR [Concomitant]
     Indication: CARDIAC DISORDER
     Dosage: 20 MG, DAILY
     Dates: start: 2008
  6. ASPIRIN [Concomitant]
     Indication: CARDIAC DISORDER
     Dosage: UNK
     Dates: start: 2008
  7. ASACOL [Concomitant]
     Dosage: UNK
     Dates: start: 20080829
  8. LEXAPRO [Concomitant]
     Dosage: UNK
     Dates: start: 20080829
  9. PROBIOTICS [Concomitant]
     Dosage: 1 DF, QD
     Dates: start: 20080620
  10. PENICILLIN V POTASSIUM [Concomitant]
     Dosage: 500 TID
     Dates: start: 20080730
  11. PREDNISONE [Concomitant]
     Dosage: 40 MG [TIMES] 3
     Route: 048
     Dates: start: 20080703
  12. PREDNISONE [Concomitant]
     Dosage: 20 MG [TIMES] 3
     Route: 048
     Dates: start: 20080703
  13. LEVSIN [Concomitant]

REACTIONS (3)
  - Myocardial infarction [None]
  - Pulmonary embolism [None]
  - Injury [None]
